FAERS Safety Report 10048259 (Version 1)
Quarter: 2014Q1

REPORT INFORMATION
  Report Type: Report from Study
  Country: RO (occurrence: RO)
  Receive Date: 20140331
  Receipt Date: 20140331
  Transmission Date: 20141002
  Serious: Yes (Hospitalization)
  Sender: FDA-Public Use
  Company Number: RO-PFIZER INC-2014085749

PATIENT
  Age: 79 Year
  Sex: 0

DRUGS (3)
  1. FLUCONAZOLE [Suspect]
     Dosage: UNK
  2. ACENOCOUMAROL [Interacting]
     Dosage: UNK
  3. FENOFIBRATE [Interacting]
     Dosage: UNK

REACTIONS (2)
  - Drug interaction [Unknown]
  - Haematuria [Unknown]
